FAERS Safety Report 6960532-9 (Version None)
Quarter: 2010Q3

REPORT INFORMATION
  Report Type: 
  Country: None (occurrence: None)
  Receive Date: 20100901
  Receipt Date: 20100826
  Transmission Date: 20110219
  Serious: Yes (Life-Threatening)
  Sender: FDA-Public Use
  Company Number: JP-SANOFI-AVENTIS-F01200900313

PATIENT
  Age: 59 Year
  Sex: Male
  Weight: 63 kg

DRUGS (9)
  1. CLOPIDOGREL BISULFATE [Suspect]
     Dosage: DOSE TEXT: MAINTENANCE DOSE
     Route: 048
     Dates: start: 20080902, end: 20081126
  2. CLOPIDOGREL BISULFATE [Suspect]
     Indication: ACUTE CORONARY SYNDROME
     Dosage: DOSE TEXT: MAINTENANCE DOSE
     Route: 048
     Dates: start: 20080902, end: 20081126
  3. ASPIRIN [Concomitant]
     Dates: start: 20071019
  4. HEPARIN [Concomitant]
     Route: 042
     Dates: start: 20080829
  5. HEPARIN [Concomitant]
     Route: 042
     Dates: start: 20080911
  6. HEPARIN [Concomitant]
     Route: 042
     Dates: start: 20080918
  7. NORVASC [Concomitant]
     Route: 048
     Dates: start: 20080829, end: 20080902
  8. BLOPRESS [Concomitant]
     Route: 048
     Dates: start: 20080829, end: 20080902
  9. ALDOMET [Concomitant]
     Route: 048
     Dates: start: 20080829, end: 20080902

REACTIONS (2)
  - CORONARY ARTERY DISSECTION [None]
  - IN-STENT CORONARY ARTERY RESTENOSIS [None]
